FAERS Safety Report 4764257-X (Version None)
Quarter: 2005Q3

REPORT INFORMATION
  Report Type: 
  Country: None (occurrence: None)
  Receive Date: 20050907
  Receipt Date: 20050907
  Transmission Date: 20060218
  Serious: Yes (Disabling, Other)
  Sender: FDA-Public Use
  Company Number: None

PATIENT
  Age: 54 Year
  Sex: Female
  Weight: 81.6475 kg

DRUGS (2)
  1. LEVAQUIN [Suspect]
     Indication: BACTERIAL INFECTION
     Dosage: 500MG. ONCE PO
     Route: 048
     Dates: start: 20030909, end: 20030909
  2. CIPRO [Suspect]
     Indication: BACTERIAL INFECTION
     Dosage: 250MG. 2XDAILY FOR 3 DAY PO
     Route: 048
     Dates: start: 20030909, end: 20030909

REACTIONS (44)
  - AMNESIA [None]
  - ANXIETY [None]
  - ARTHRALGIA [None]
  - ASTHENIA [None]
  - BACK PAIN [None]
  - BLEPHAROSPASM [None]
  - BLOOD CHOLESTEROL INCREASED [None]
  - BLOOD PRESSURE INCREASED [None]
  - BLOOD URINE [None]
  - BURNING SENSATION [None]
  - COORDINATION ABNORMAL [None]
  - DEPRESSION [None]
  - DIZZINESS [None]
  - DRY SKIN [None]
  - DYSARTHRIA [None]
  - DYSPEPSIA [None]
  - DYSPHASIA [None]
  - DYSPNOEA [None]
  - EPISTAXIS [None]
  - ERYTHEMA [None]
  - FATIGUE [None]
  - FEELING ABNORMAL [None]
  - FEELING HOT [None]
  - HAIR DISORDER [None]
  - HYPERAESTHESIA [None]
  - HYPERHIDROSIS [None]
  - IMPAIRED DRIVING ABILITY [None]
  - INSOMNIA [None]
  - IRRITABILITY [None]
  - JOINT LOCK [None]
  - JOINT RANGE OF MOTION DECREASED [None]
  - LOOSE BODY IN JOINT [None]
  - MOBILITY DECREASED [None]
  - MUSCLE SPASMS [None]
  - NAIL DISORDER [None]
  - NIGHTMARE [None]
  - PAIN [None]
  - PAIN IN EXTREMITY [None]
  - PARALYSIS [None]
  - PHOTOPSIA [None]
  - SACCADIC EYE MOVEMENT [None]
  - SKIN ODOUR ABNORMAL [None]
  - THYROID DISORDER [None]
  - TREMOR [None]
